FAERS Safety Report 8134414-3 (Version None)
Quarter: 2012Q1

REPORT INFORMATION
  Report Type: 
  Country: None (occurrence: None)
  Receive Date: 20120209
  Receipt Date: 20120126
  Transmission Date: 20120608
  Serious: Yes (Hospitalization, Disabling, Other)
  Sender: FDA-Public Use
  Company Number: 2010MA002020

PATIENT
  Sex: Female
  Weight: 78.9259 kg

DRUGS (20)
  1. CLONAZEPAM [Concomitant]
  2. MYSOLINE [Concomitant]
  3. GLIMEPIRIDE [Concomitant]
  4. CORTISONE ACETATE [Concomitant]
  5. TOPROL-XL [Concomitant]
  6. HYDROCODONE BITARTRATE [Concomitant]
  7. JANUMET [Concomitant]
  8. VITAMIN D [Concomitant]
  9. CRESTOR [Concomitant]
  10. PRIMIDONE [Concomitant]
  11. CLONIDINE [Concomitant]
  12. APAP TAB [Concomitant]
  13. NORVASC [Concomitant]
  14. GEMFIBROZIL [Concomitant]
  15. ASPIRIN [Concomitant]
  16. LORTAB [Concomitant]
  17. METOCLOPRAMIDE HYDROCHLORIDE [Suspect]
     Indication: DIABETIC GASTROPARESIS
     Dosage: 10 MG, QID, PO
     Route: 048
     Dates: start: 20080625, end: 20100601
  18. AMLODIPINE [Concomitant]
  19. SULFAMETHOXAZOLE [Concomitant]
  20. CALCIUM [Concomitant]

REACTIONS (19)
  - OSTEOPOROSIS [None]
  - DIABETIC GASTROPARESIS [None]
  - PARAESTHESIA [None]
  - SPINAL OSTEOARTHRITIS [None]
  - HEADACHE [None]
  - SLEEP APNOEA SYNDROME [None]
  - INTERVERTEBRAL DISC DEGENERATION [None]
  - ECONOMIC PROBLEM [None]
  - TREMOR [None]
  - BACK PAIN [None]
  - EXTRAPYRAMIDAL DISORDER [None]
  - CONSTIPATION [None]
  - TARDIVE DYSKINESIA [None]
  - DIABETES MELLITUS [None]
  - VERTEBRAL FORAMINAL STENOSIS [None]
  - EMOTIONAL DISTRESS [None]
  - DYSKINESIA [None]
  - FALL [None]
  - MUSCULOSKELETAL PAIN [None]
